FAERS Safety Report 15595857 (Version 2)
Quarter: 2018Q4

REPORT INFORMATION
  Report Type: Spontaneous
  Country: ES (occurrence: ES)
  Receive Date: 20181107
  Receipt Date: 20181117
  Transmission Date: 20190205
  Serious: Yes (Hospitalization, Other)
  Sender: FDA-Public Use
  Company Number: ES-AUROBINDO-AUR-APL-2018-053387

PATIENT
  Age: 2 Month
  Sex: Female

DRUGS (1)
  1. PARACETAMOL [Suspect]
     Active Substance: ACETAMINOPHEN
     Indication: PRODUCT USED FOR UNKNOWN INDICATION
     Dosage: 48 MILLIGRAM IN TOTAL
     Route: 065

REACTIONS (5)
  - Toxicity to various agents [Recovered/Resolved]
  - Renal impairment [Recovered/Resolved]
  - Hepatotoxicity [Recovered/Resolved]
  - Weight decreased [Recovered/Resolved]
  - Fever neonatal [Recovered/Resolved]
